FAERS Safety Report 8307815-8 (Version None)
Quarter: 2012Q2

REPORT INFORMATION
  Report Type: 
  Country: None (occurrence: None)
  Receive Date: 20120424
  Receipt Date: 20110808
  Transmission Date: 20120825
  Serious: Yes (Other)
  Sender: FDA-Public Use
  Company Number: US-TEVA-2009001965

PATIENT
  Sex: Female

DRUGS (3)
  1. PROVIGIL [Suspect]
     Indication: CRANIOPHARYNGIOMA
  2. PROVIGIL [Suspect]
     Indication: NARCOLEPSY
     Route: 048
  3. PROVIGIL [Suspect]
     Indication: HYPERSOMNIA

REACTIONS (1)
  - SELF-INJURIOUS IDEATION [None]
